FAERS Safety Report 5015929-3 (Version None)
Quarter: 2006Q2

REPORT INFORMATION
  Report Type: 
  Country: None (occurrence: None)
  Receive Date: 20060525
  Receipt Date: 20060518
  Transmission Date: 20061013
  Serious: Yes (Life-Threatening, Hospitalization, Disabling)
  Sender: FDA-Public Use
  Company Number: 220002M06DEU

PATIENT
  Age: 15 Year
  Sex: Male
  Weight: 46 kg

DRUGS (1)
  1. SAIZEN [Suspect]
     Indication: BLOOD GROWTH HORMONE
     Dosage: 1.16 MG, 1 IN 1 DAYS, SUBCUTANEOUS
     Route: 058
     Dates: start: 19990901, end: 20060313

REACTIONS (1)
  - MEDULLOBLASTOMA [None]
